FAERS Safety Report 13748760 (Version 1)
Quarter: 2017Q3

REPORT INFORMATION
  Report Type: Spontaneous
  Country: US (occurrence: US)
  Receive Date: 20170712
  Receipt Date: 20170712
  Transmission Date: 20171127
  Serious: Yes (Other)
  Sender: FDA-Public Use
  Company Number: None

PATIENT
  Age: 56 Year
  Sex: Male
  Weight: 101.61 kg

DRUGS (1)
  1. ZUBSOLV [Suspect]
     Active Substance: BUPRENORPHINE HYDROCHLORIDE\NALOXONE HYDROCHLORIDE
     Indication: DRUG DEPENDENCE
     Dosage: DOSE AMOUNT - 5.7/1.4MG
     Route: 060
     Dates: start: 20170614, end: 20170705

REACTIONS (2)
  - Gastrooesophageal reflux disease [None]
  - Nausea [None]

NARRATIVE: CASE EVENT DATE: 20170614
